FAERS Safety Report 10541872 (Version 7)
Quarter: 2015Q1

REPORT INFORMATION
  Report Type: Spontaneous
  Country: US (occurrence: US)
  Receive Date: 20141024
  Receipt Date: 20150224
  Transmission Date: 20150720
  Serious: Yes (Death, Hospitalization)
  Sender: FDA-Public Use
  Company Number: US-LUNDBECK-DKLU1104622

PATIENT
  Age: 83 Year
  Sex: Male

DRUGS (4)
  1. TRAZODONE [Suspect]
     Active Substance: TRAZODONE HYDROCHLORIDE
     Indication: AGITATION
     Route: 065
  2. NORTHERA [Suspect]
     Active Substance: DROXIDOPA
     Indication: ORTHOSTATIC HYPOTENSION
     Route: 048
     Dates: start: 2014, end: 20141111
  3. CELEXA TABLETS [Concomitant]
     Indication: PRODUCT USED FOR UNKNOWN INDICATION
  4. NORTHERA [Suspect]
     Active Substance: DROXIDOPA
     Indication: HYPOTHALAMO-PITUITARY DISORDER
     Route: 048

REACTIONS (7)
  - Dehydration [Recovered/Resolved]
  - Skin disorder [Recovered/Resolved]
  - Mental status changes [Recovered/Resolved]
  - Oedema [Recovered/Resolved]
  - Cardiac failure [Fatal]
  - Agitation [Recovered/Resolved]
  - Pneumonia aspiration [Fatal]

NARRATIVE: CASE EVENT DATE: 201409
